FAERS Safety Report 4887486-3 (Version None)
Quarter: 2006Q1

REPORT INFORMATION
  Report Type: 
  Country: None (occurrence: None)
  Receive Date: 20060118
  Receipt Date: 20060105
  Transmission Date: 20060701
  Serious: Yes (Death)
  Sender: FDA-Public Use
  Company Number: GB200601000547

PATIENT
  Age: 82 Year
  Sex: Female

DRUGS (2)
  1. FORTEO [Suspect]
     Indication: OSTEOPOROSIS
     Dates: start: 20041201
  2. FORTEO PEN (250MCG/ML) (FORTEO PEN 250MG/ML (3ML)) PEN, DISPOSABLE [Concomitant]

REACTIONS (1)
  - CEREBROVASCULAR ACCIDENT [None]
